FAERS Safety Report 16345559 (Version 1)
Quarter: 2019Q2

REPORT INFORMATION
  Report Type: Spontaneous
  Country: US (occurrence: US)
  Receive Date: 20190523
  Receipt Date: 20190523
  Transmission Date: 20190711
  Serious: No
  Sender: FDA-Public Use
  Company Number: US-CIPLA LTD.-2019US02027

PATIENT

DRUGS (1)
  1. TESTOSTERONE. [Suspect]
     Active Substance: TESTOSTERONE
     Indication: BLOOD TESTOSTERONE DECREASED
     Dosage: 1 ML, ONE AND A HALF VIAL EVERY TWO WEEKS
     Route: 030
     Dates: start: 2018

REACTIONS (2)
  - Multiple use of single-use product [Unknown]
  - Product deposit [Unknown]

NARRATIVE: CASE EVENT DATE: 2019
